FAERS Safety Report 16991440 (Version 2)
Quarter: 2019Q4

REPORT INFORMATION
  Report Type: Report from Study
  Country: CA (occurrence: CA)
  Receive Date: 20191104
  Receipt Date: 20191204
  Transmission Date: 20200122
  Serious: Yes (Other)
  Sender: FDA-Public Use
  Company Number: CA-NALPROPION PHARMACEUTICALS INC.-2019-008914

PATIENT

DRUGS (5)
  1. CIPROFLOXACIN. [Concomitant]
     Active Substance: CIPROFLOXACIN
     Indication: PRODUCT USED FOR UNKNOWN INDICATION
     Dosage: UNK
  2. CONTRAVE [Suspect]
     Active Substance: BUPROPION HYDROCHLORIDE\NALTREXONE HYDROCHLORIDE
     Indication: WEIGHT CONTROL
     Dosage: STARTED APPROXIMATELY 26/AUG/2019, STOPPED APPROX. 01/SEP/2019, IN THE MORNING
     Route: 048
     Dates: start: 201908, end: 2019
  3. CONTRAVE [Suspect]
     Active Substance: BUPROPION HYDROCHLORIDE\NALTREXONE HYDROCHLORIDE
     Dosage: STARTED APPROXIMATELY 09/SEP/2019 TO15/SEP/2019, TWO TABLETS IN THE MORNING AND ONE IN THE EVENING
     Route: 048
     Dates: start: 201909, end: 201909
  4. CONTRAVE [Suspect]
     Active Substance: BUPROPION HYDROCHLORIDE\NALTREXONE HYDROCHLORIDE
     Dosage: FROM APPROXIMATELY 02/SEP/2019 TO 08/SEP/2019, ONE TABLET IN THE MORNING AND ONE IN THE EVENING
     Route: 048
     Dates: start: 2019, end: 201909
  5. CONTRAVE [Suspect]
     Active Substance: BUPROPION HYDROCHLORIDE\NALTREXONE HYDROCHLORIDE
     Dosage: STARTED APPROXIMATELY 16/SEP/2019 TWO TABLETS IN THE MORNING AND TWO TABLETS IN THE EVENING
     Route: 048
     Dates: start: 201909, end: 2019

REACTIONS (4)
  - Nasopharyngitis [Unknown]
  - Contraindicated product administered [Unknown]
  - Bladder repair [Unknown]
  - Chronic obstructive pulmonary disease [Unknown]

NARRATIVE: CASE EVENT DATE: 2019
